FAERS Safety Report 6985332-5 (Version None)
Quarter: 2010Q3

REPORT INFORMATION
  Report Type: 
  Country: None (occurrence: None)
  Receive Date: 20100915
  Receipt Date: 20100903
  Transmission Date: 20110219
  Serious: No
  Sender: FDA-Public Use
  Company Number: US-PFIZER INC-2010112364

PATIENT
  Sex: Female
  Weight: 71.202 kg

DRUGS (4)
  1. NEURONTIN [Suspect]
     Indication: PAIN IN EXTREMITY
     Dosage: 100 MG, 2X/DAY
     Route: 048
     Dates: start: 20100902
  2. NORVASC [Concomitant]
     Indication: HYPERTENSION
     Dosage: UNK
  3. ISOSORBIDE [Concomitant]
     Indication: HYPERTENSION
     Dosage: UNK
  4. VITAMINS [Concomitant]
     Dosage: UNK

REACTIONS (2)
  - FEELING ABNORMAL [None]
  - SEDATION [None]
